FAERS Safety Report 9013789 (Version 1)
Quarter: 2012Q4

REPORT INFORMATION
  Report Type: Spontaneous
  Country: DE (occurrence: None)
  Receive Date: 20121231
  Receipt Date: 20121231
  Transmission Date: 20130627
  Serious: Yes (Other)
  Sender: FDA-Public Use
  Company Number: VAL_01209_2012

PATIENT
  Age: 58 Year
  Sex: Female

DRUGS (8)
  1. METOPROLOL (METOPROLOL (METOPROLOL TARTRATE)) 95 MG [Suspect]
     Indication: HYPERTENSION
  2. VALSARTAN (VALSARTAN (VALSARTAN)) [Suspect]
     Indication: HYPERTENSION
  3. MINOXIDIL (MINOXIDIL (NGX) (MINOXIDIL)) [Suspect]
  4. SPIRONOLACTONE (SPIRONOLACTONE (NGX) (SPIRONOLACTONE)) (NOT SPECIFIED) [Suspect]
     Indication: PRODUCT USED FOR UNKNOWN INDICATION
  5. FUROSEMIDE (FUROSEMIDE (NGX) (FUROSEMIDE)) [Suspect]
     Indication: PRODUCT USED FOR UNKNOWN INDICATION
  6. HYDROCHLOROTHIAZIDE [Concomitant]
  7. DIGOXIN [Concomitant]
  8. ASPIRIN [Concomitant]

REACTIONS (6)
  - Cardiac failure [None]
  - Atrial fibrillation [None]
  - Hypertension [None]
  - Left atrial dilatation [None]
  - Mitral valve incompetence [None]
  - Angina pectoris [None]
